FAERS Safety Report 24467282 (Version 1)
Quarter: 2024Q4

REPORT INFORMATION
  Report Type: Report from Study
  Country: US (occurrence: US)
  Receive Date: 20241018
  Receipt Date: 20241018
  Transmission Date: 20250114
  Serious: No
  Sender: ROCHE
  Company Number: US-ROCHE-3557258

PATIENT

DRUGS (4)
  1. XOLAIR [Suspect]
     Active Substance: OMALIZUMAB
     Indication: Mast cell activation syndrome
     Route: 065
  2. ALLEGRA [Concomitant]
     Active Substance: FEXOFENADINE HYDROCHLORIDE
  3. KETOTIFEN [Concomitant]
     Active Substance: KETOTIFEN
  4. CROMOLYN SODIUM [Concomitant]
     Active Substance: CROMOLYN SODIUM

REACTIONS (3)
  - Dizziness [Unknown]
  - Headache [Unknown]
  - Tooth infection [Unknown]
